FAERS Safety Report 6661303-3 (Version None)
Quarter: 2010Q1

REPORT INFORMATION
  Report Type: 
  Country: None (occurrence: None)
  Receive Date: 20100331
  Receipt Date: 20100318
  Transmission Date: 20100710
  Serious: No
  Sender: FDA-Public Use
  Company Number: US-B.I. PHARMACEUTICALS,INC./RIDGEFIELD-2010-BP-02415BP

PATIENT
  Age: 72 Year
  Sex: Male
  Weight: 53.98 kg

DRUGS (4)
  1. SPIRIVA [Suspect]
     Indication: CHRONIC OBSTRUCTIVE PULMONARY DISEASE
     Dosage: 18 MCG
     Dates: start: 20050601, end: 20050601
  2. BIAXIN [Concomitant]
     Dates: start: 20050601, end: 20050601
  3. HISTUSSIN HC [Concomitant]
     Route: 048
     Dates: start: 20050601, end: 20050601
  4. ADVAIR DISKUS 100/50 [Concomitant]
     Dosage: 2 PUF
     Dates: start: 20050601

REACTIONS (3)
  - LIP BLISTER [None]
  - TONGUE BLISTERING [None]
  - TONGUE DISORDER [None]
